FAERS Safety Report 20533871 (Version 1)
Quarter: 2022Q1

REPORT INFORMATION
  Report Type: Spontaneous
  Country: CN (occurrence: CN)
  Receive Date: 20220301
  Receipt Date: 20220301
  Transmission Date: 20220424
  Serious: Yes (Other)
  Sender: FDA-Public Use
  Company Number: CN-UCBSA-2022009585

PATIENT

DRUGS (2)
  1. KEPPRA [Suspect]
     Active Substance: LEVETIRACETAM
     Indication: Product used for unknown indication
     Dosage: UNK
  2. VIMPAT [Suspect]
     Active Substance: LACOSAMIDE
     Indication: Product used for unknown indication
     Dosage: UNK

REACTIONS (14)
  - Metamorphopsia [Unknown]
  - Iris adhesions [Unknown]
  - Blepharospasm [Unknown]
  - Eye movement disorder [Unknown]
  - Strabismus [Unknown]
  - Excessive eye blinking [Unknown]
  - Gaze palsy [Unknown]
  - Opsoclonus myoclonus [Unknown]
  - Diplopia [Unknown]
  - Photopsia [Unknown]
  - Papilloedema [Unknown]
  - Photophobia [Unknown]
  - Eye oedema [Unknown]
  - Vision blurred [Unknown]
